FAERS Safety Report 9464346 (Version 2)
Quarter: 2013Q3

REPORT INFORMATION
  Report Type: Spontaneous
  Country: MY (occurrence: MY)
  Receive Date: 20130819
  Receipt Date: 20130819
  Transmission Date: 20140515
  Serious: Yes (Death)
  Sender: FDA-Public Use
  Company Number: MY-PFIZER INC-2013236094

PATIENT
  Sex: Male

DRUGS (1)
  1. XALKORI [Suspect]

REACTIONS (1)
  - Death [Fatal]
